FAERS Safety Report 12177308 (Version 1)
Quarter: 2016Q1

REPORT INFORMATION
  Report Type: Spontaneous
  Country: US (occurrence: US)
  Receive Date: 20160314
  Receipt Date: 20160314
  Transmission Date: 20160526
  Serious: No
  Sender: FDA-Public Use
  Company Number: US-ASTRAZENECA-2016SE23680

PATIENT
  Sex: Female

DRUGS (1)
  1. BYDUREON [Suspect]
     Active Substance: EXENATIDE
     Indication: TYPE 2 DIABETES MELLITUS
     Route: 048

REACTIONS (2)
  - Product quality issue [Unknown]
  - Injection site vesicles [Recovering/Resolving]

NARRATIVE: CASE EVENT DATE: 20160302
